FAERS Safety Report 9254403 (Version 2)
Quarter: 2013Q2

REPORT INFORMATION
  Report Type: Report from Study
  Country: US (occurrence: US)
  Receive Date: 20130425
  Receipt Date: 20130607
  Transmission Date: 20140414
  Serious: No
  Sender: FDA-Public Use
  Company Number: US-VERTEX PHARMACEUTICALS INC.-2013-005311

PATIENT
  Sex: Female

DRUGS (7)
  1. VX-950 (TELAPREVIR) [Suspect]
     Indication: HEPATITIS C
     Dosage: UNK
     Route: 048
     Dates: start: 20121101, end: 20130125
  2. RIBAVIRIN [Suspect]
     Indication: HEPATITIS C
     Dosage: UNK
     Dates: start: 20121101
  3. PEGASYS [Suspect]
     Indication: HEPATITIS C
     Dosage: UNK
     Dates: start: 20121101
  4. PRAMIPEXOLE [Concomitant]
  5. WELLBUTRIN XL [Concomitant]
  6. TRAZODONE [Concomitant]
     Indication: SLEEP DISORDER
  7. YAZ [Concomitant]

REACTIONS (1)
  - Alopecia [Not Recovered/Not Resolved]
